FAERS Safety Report 8510912-5 (Version None)
Quarter: 2012Q3

REPORT INFORMATION
  Report Type: 
  Country: None (occurrence: None)
  Receive Date: 20120703
  Receipt Date: 20120623
  Transmission Date: 20120928
  Serious: Yes (Death, Hospitalization)
  Sender: FDA-Public Use
  Company Number: MPS1-1000717

PATIENT
  Age: 10 Year
  Sex: Male
  Weight: 17 kg

DRUGS (1)
  1. ALDURAZYME [Suspect]
     Indication: MUCOPOLYSACCHARIDOSIS
     Dosage: 12 VIALS, Q4W, INTRAVENOUS
     Route: 042
     Dates: start: 20061117

REACTIONS (2)
  - PNEUMONIA [None]
  - PULMONARY OEDEMA [None]
